FAERS Safety Report 6729633-4 (Version None)
Quarter: 2010Q2

REPORT INFORMATION
  Report Type: 
  Country: None (occurrence: None)
  Receive Date: 20100512
  Receipt Date: 20100506
  Transmission Date: 20101027
  Serious: Yes (Death, Hospitalization)
  Sender: FDA-Public Use
  Company Number: 2010US001557

PATIENT
  Age: 55 Year
  Sex: Male

DRUGS (9)
  1. PROGRAF [Suspect]
     Indication: LIVER TRANSPLANT
     Dosage: 1 MG, BID, ORAL
     Route: 048
     Dates: start: 20091111
  2. EPIVIR [Concomitant]
  3. ACTIGALL [Concomitant]
  4. METOPROLOL (METOPROLOL) [Concomitant]
  5. ASPIRIN [Concomitant]
  6. XANAX [Concomitant]
  7. AMBIEN [Concomitant]
  8. CITALOPRAM HYDROBROMIDE [Concomitant]
  9. ZANTAC [Concomitant]

REACTIONS (5)
  - DISEASE RECURRENCE [None]
  - FALL [None]
  - HEPATIC FAILURE [None]
  - HEPATITIS C [None]
  - MENTAL STATUS CHANGES [None]
